FAERS Safety Report 8447029-4 (Version None)
Quarter: 2012Q2

REPORT INFORMATION
  Report Type: 
  Country: None (occurrence: None)
  Receive Date: 20120612
  Receipt Date: 20120606
  Transmission Date: 20120825
  Serious: Yes (Life-Threatening)
  Sender: FDA-Public Use
  Company Number: 2012SP030710

PATIENT
  Age: 68 Year
  Sex: Male

DRUGS (3)
  1. ULTIVA [Suspect]
     Indication: ANALGESIC THERAPY
     Dosage: 0.5 MCG/KG; IV
     Route: 042
     Dates: start: 20111124, end: 20111124
  2. DIPRIVAN [Suspect]
     Indication: ANAESTHESIA PROCEDURE
     Dosage: 100 MG; ONCE; IV
     Route: 042
     Dates: start: 20111124, end: 20111124
  3. ROCURONIUM BROMIDE [Suspect]
     Indication: NEUROMUSCULAR BLOCKING THERAPY
     Dosage: 50 MG; ONCE; IV
     Route: 042
     Dates: start: 20111124, end: 20111124

REACTIONS (2)
  - RESPIRATORY ARREST [None]
  - PHARYNGEAL OEDEMA [None]
